FAERS Safety Report 6120730-3 (Version None)
Quarter: 2009Q1

REPORT INFORMATION
  Report Type: 
  Country: None (occurrence: None)
  Receive Date: 20090317
  Receipt Date: 20090311
  Transmission Date: 20090719
  Serious: Yes (Hospitalization)
  Sender: FDA-Public Use
  Company Number: US-ELI_LILLY_AND_COMPANY-US200808000272

PATIENT
  Sex: Male
  Weight: 124.94 kg

DRUGS (26)
  1. BYETTA [Suspect]
     Indication: TYPE 2 DIABETES MELLITUS
     Dosage: 10 UG, UNKNOWN
     Route: 058
     Dates: start: 20070301, end: 20070401
  2. BYETTA [Suspect]
     Dosage: 10 UG, 2/D
     Route: 058
     Dates: start: 20070401, end: 20080623
  3. LIPITOR [Concomitant]
     Dosage: UNK, UNKNOWN
     Route: 048
     Dates: end: 20080108
  4. LIPITOR [Concomitant]
     Dosage: 80 MG, UNK
     Route: 048
     Dates: start: 20080108, end: 20080621
  5. LIPITOR [Concomitant]
     Dosage: 40 MG, EACH EVENING
     Dates: start: 20080624
  6. LEVEMIR [Concomitant]
     Dosage: 23 U, DAILY (1/D)
     Route: 058
     Dates: start: 20080123
  7. METFORMIN HCL [Concomitant]
     Dosage: 1000 MG, 2/D
     Route: 048
  8. LASIX [Concomitant]
     Dosage: 40 MG, UNKNOWN
     Route: 048
  9. ZESTRIL [Concomitant]
     Indication: HYPERTENSION
     Dosage: 10 MG, DAILY (1/D)
     Route: 048
     Dates: end: 20080624
  10. CIALIS [Concomitant]
     Indication: ERECTILE DYSFUNCTION
     Dosage: 20 MG, AS NEEDED
     Route: 048
  11. ACTOS [Concomitant]
     Dosage: 30 MG, DAILY (1/D)
     Route: 048
  12. OMEPRAZOLE SODIUM [Concomitant]
     Indication: PROPHYLAXIS
     Dates: start: 20080624
  13. NOVOLOG MIX 70/30 [Concomitant]
  14. NOVOLOG [Concomitant]
     Dosage: UNK, AS NEEDED
     Route: 058
  15. BENICAR [Concomitant]
     Dosage: 20 MG, DAILY (1/D)
     Route: 048
     Dates: start: 20080624
  16. AMBIEN [Concomitant]
     Indication: SLEEP DISORDER
  17. CIPROFLOXACIN [Concomitant]
  18. KETOCONAZOLE [Concomitant]
  19. PROPOXYPHENE NAPSYLATE W/ ACETAMINOPHEN [Concomitant]
  20. OXYCODONE HYDROCHLORIDE W/PARACETAMOL [Concomitant]
  21. IBUPROFEN TABLETS [Concomitant]
  22. EPHEDRINE [Concomitant]
  23. CHLORPHENTERMINE 65MG TAB [Concomitant]
  24. SCOPOLAMINE [Concomitant]
  25. HYDROCODONE BITARTRATE AND ACETAMINOPHEN [Concomitant]
  26. AMOXICLAV /01000301/ [Concomitant]

REACTIONS (2)
  - CHOLELITHIASIS [None]
  - PANCREATITIS [None]
